FAERS Safety Report 24328937 (Version 2)
Quarter: 2024Q3

REPORT INFORMATION
  Report Type: Spontaneous
  Country: IL (occurrence: IL)
  Receive Date: 20240917
  Receipt Date: 20240927
  Transmission Date: 20241016
  Serious: Yes (Life-Threatening, Hospitalization)
  Sender: TEVA
  Company Number: IL-TEVA-VS-3243011

PATIENT
  Age: 77 Year
  Sex: Female

DRUGS (5)
  1. VERAPAMIL [Suspect]
     Active Substance: VERAPAMIL HYDROCHLORIDE
     Indication: Supraventricular tachycardia
     Route: 065
  2. ELIQUIS [Concomitant]
     Active Substance: APIXABAN
     Indication: Atrial fibrillation
  3. METOPROLOL [Interacting]
     Active Substance: METOPROLOL
     Indication: Supraventricular tachycardia
     Route: 042
  4. ADENOSINE [Interacting]
     Active Substance: ADENOSINE
     Indication: Supraventricular tachycardia
     Route: 042
  5. TAMBOCOR [Suspect]
     Active Substance: FLECAINIDE ACETATE
     Indication: Atrial fibrillation
     Route: 065

REACTIONS (5)
  - Atrioventricular block complete [Recovering/Resolving]
  - Drug interaction [Unknown]
  - Cardiac arrest [Recovering/Resolving]
  - Sinus node dysfunction [Recovering/Resolving]
  - Atrial flutter [Recovering/Resolving]
